FAERS Safety Report 9661324 (Version 1)
Quarter: 2013Q4

REPORT INFORMATION
  Report Type: Spontaneous
  Country: US (occurrence: None)
  Receive Date: 20131030
  Receipt Date: 20131030
  Transmission Date: 20140711
  Serious: Yes (Other)
  Sender: FDA-Public Use
  Company Number: CIP-2013-00206

PATIENT
  Sex: 0

DRUGS (3)
  1. CARBOPLATIN INJECTION DRY (CARBOPLATIN) [Suspect]
     Indication: BREAST CANCER METASTATIC
     Dosage: AREA UNDER THE CURVE 2 (DAYS 1,8 AND 15 OF 28 DAY CYCLE)
     Route: 042
  2. NAB-PACLITAXEL (PACLITAXEL) [Suspect]
     Indication: BREAST CANCER METASTATIC
     Dosage: DAYS 1,8 AND 15 OF 28 DAY CYCLE
     Route: 042
  3. BEVACIZUMAB (BEVACIZUMAB) [Suspect]
     Indication: BREAST CANCER METASTATIC
     Dosage: DAYS 1 AND 15 OF 28 DAY CYCLE
     Route: 042

REACTIONS (1)
  - Deep vein thrombosis [None]
